FAERS Safety Report 11308016 (Version 1)
Quarter: 2015Q3

REPORT INFORMATION
  Report Type: Report from Study
  Country: US (occurrence: US)
  Receive Date: 20150724
  Receipt Date: 20150724
  Transmission Date: 20151125
  Serious: No
  Sender: FDA-Public Use
  Company Number: PHEH2015US008589

PATIENT
  Age: 36 Year
  Sex: Male

DRUGS (1)
  1. GILENYA [Suspect]
     Active Substance: FINGOLIMOD HYDROCHLORIDE
     Indication: MULTIPLE SCLEROSIS
     Dosage: 0.5 MG, QD
     Route: 048
     Dates: start: 20140731, end: 20150107

REACTIONS (4)
  - Memory impairment [Unknown]
  - Balance disorder [Unknown]
  - Oral pain [Unknown]
  - Pain [Unknown]

NARRATIVE: CASE EVENT DATE: 20150507
